FAERS Safety Report 19200431 (Version 1)
Quarter: 2021Q2

REPORT INFORMATION
  Report Type: Report from Study
  Country: US (occurrence: US)
  Receive Date: 20210430
  Receipt Date: 20210430
  Transmission Date: 20210717
  Serious: Yes (Other)
  Sender: FDA-Public Use
  Company Number: US-BAYER-2021-130393

PATIENT
  Age: 70 Year
  Sex: Male

DRUGS (2)
  1. ASPIRIN. [Suspect]
     Active Substance: ASPIRIN
  2. APIXABAN [Interacting]
     Active Substance: APIXABAN

REACTIONS (2)
  - Labelled drug-drug interaction medication error [None]
  - Lower gastrointestinal haemorrhage [None]
